FAERS Safety Report 5201019-3 (Version None)
Quarter: 2007Q1

REPORT INFORMATION
  Report Type: 
  Country: None (occurrence: None)
  Receive Date: 20070108
  Receipt Date: 20070104
  Transmission Date: 20070707
  Serious: Yes (Disabling, Other)
  Sender: FDA-Public Use
  Company Number: GB-GLAXOSMITHKLINE-B0453058A

PATIENT
  Age: 58 Year
  Sex: Male
  Weight: 70 kg

DRUGS (2)
  1. AMOXICILLIN + CLAVULANATE POTASSIUM [Suspect]
     Indication: PNEUMONIA
     Dosage: 250MG THREE TIMES PER DAY
     Route: 048
     Dates: start: 20060804, end: 20060811
  2. SILYBUM MARIANUM [Suspect]
     Indication: DRUG USE FOR UNKNOWN INDICATION
     Dosage: 500MG TWICE PER DAY
     Route: 048
     Dates: start: 20060804, end: 20060901

REACTIONS (5)
  - ASTHENIA [None]
  - DRUG INTERACTION [None]
  - FATIGUE [None]
  - IRON DEFICIENCY ANAEMIA [None]
  - PALLOR [None]
